FAERS Safety Report 15272320 (Version 1)
Quarter: 2018Q3

REPORT INFORMATION
  Report Type: Spontaneous
  Country: CA (occurrence: CA)
  Receive Date: 20180813
  Receipt Date: 20180813
  Transmission Date: 20181010
  Serious: Yes (Life-Threatening, Disabling, Other)
  Sender: FDA-Public Use
  Company Number: CA-BAYER-2018-146110

PATIENT
  Age: 30 Year
  Sex: Female

DRUGS (2)
  1. MIRENA [Suspect]
     Active Substance: LEVONORGESTREL
     Indication: CONTRACEPTION
     Dosage: 20 MCG/24HR, CONT
     Route: 015
  2. PROPRANOLOL HYDROCHLORIDE. [Concomitant]
     Active Substance: PROPRANOLOL HYDROCHLORIDE
     Route: 048

REACTIONS (7)
  - Asthenia [Recovering/Resolving]
  - Depressed mood [Recovering/Resolving]
  - Anxiety [Recovering/Resolving]
  - Major depression [Recovering/Resolving]
  - Sleep disorder [Recovering/Resolving]
  - Impaired work ability [Recovering/Resolving]
  - Negative thoughts [Recovering/Resolving]
